FAERS Safety Report 16440936 (Version 1)
Quarter: 2019Q2

REPORT INFORMATION
  Report Type: Spontaneous
  Country: JP (occurrence: JP)
  Receive Date: 20190617
  Receipt Date: 20190617
  Transmission Date: 20190711
  Serious: Yes (Other)
  Sender: FDA-Public Use
  Company Number: JP-OTSUKA-2019_022757

PATIENT
  Age: 67 Year
  Sex: Male

DRUGS (2)
  1. SAMSCA [Suspect]
     Active Substance: TOLVAPTAN
     Indication: HEPATIC CIRRHOSIS
     Dosage: UNK
     Route: 065
  2. SAMSCA [Suspect]
     Active Substance: TOLVAPTAN
     Indication: ASCITES

REACTIONS (1)
  - Organising pneumonia [Unknown]
